FAERS Safety Report 5746815-9 (Version None)
Quarter: 2008Q2

REPORT INFORMATION
  Report Type: 
  Country: None (occurrence: None)
  Receive Date: 20080522
  Receipt Date: 20080516
  Transmission Date: 20081010
  Serious: Yes (Other)
  Sender: FDA-Public Use
  Company Number: US-PFIZER INC-2008042363

PATIENT
  Sex: Female
  Weight: 113.4 kg

DRUGS (3)
  1. GEODON [Suspect]
     Indication: BIPOLAR DISORDER
     Dates: start: 20080512, end: 20080515
  2. AMBIEN [Concomitant]
  3. ATIVAN [Concomitant]

REACTIONS (5)
  - DYSSTASIA [None]
  - FEELING DRUNK [None]
  - PANIC REACTION [None]
  - RESPIRATORY DISTRESS [None]
  - RESTLESSNESS [None]
